FAERS Safety Report 10136398 (Version 1)
Quarter: 2014Q2

REPORT INFORMATION
  Report Type: Spontaneous
  Country: US (occurrence: None)
  Receive Date: 20140425
  Receipt Date: 20140425
  Transmission Date: 20141212
  Serious: Yes (Hospitalization)
  Sender: FDA-Public Use
  Company Number: UTC-047386

PATIENT
  Age: 73 Year
  Sex: Female

DRUGS (2)
  1. TYVASO [Suspect]
     Indication: COR PULMONALE CHRONIC
     Route: 055
     Dates: start: 20120529
  2. REVATIO (SILDENAFIL CITRATE) [Concomitant]

REACTIONS (2)
  - Cardiac disorder [None]
  - Cardiac pacemaker insertion [None]
